FAERS Safety Report 8874523 (Version 1)
Quarter: 2012Q4

REPORT INFORMATION
  Report Type: 
  Country: IT (occurrence: IT)
  Receive Date: 20121023
  Receipt Date: 20121023
  Transmission Date: 20130627
  Serious: Yes (Hospitalization)
  Sender: FDA-Public Use
  Company Number: PHHY2012IT094017

PATIENT
  Age: 42 Year
  Sex: Female

DRUGS (2)
  1. RAMIPRIL [Suspect]
     Indication: HYPERTENSION
     Dosage: 70 mg
     Route: 048
     Dates: start: 20121010, end: 20121010
  2. LOBIVON [Suspect]
     Indication: HYPERTENSION
     Dosage: 14 DF
     Route: 048
     Dates: start: 20121010, end: 20121010

REACTIONS (2)
  - Drug abuse [Recovered/Resolved]
  - Hypotension [Recovered/Resolved]
